FAERS Safety Report 23145493 (Version 1)
Quarter: 2023Q4

REPORT INFORMATION
  Report Type: Spontaneous
  Country: US (occurrence: US)
  Receive Date: 20231103
  Receipt Date: 20231103
  Transmission Date: 20240110
  Serious: No
  Sender: FDA-Public Use
  Company Number: US-SANDOZ-SDZ2023US050398

PATIENT
  Age: 60 Year

DRUGS (1)
  1. KETOCONAZOLE [Suspect]
     Active Substance: KETOCONAZOLE
     Indication: Fungal infection
     Dosage: OINTMENT
     Route: 065

REACTIONS (5)
  - Ocular hyperaemia [Unknown]
  - Vision blurred [Unknown]
  - Product colour issue [Unknown]
  - Skin adhesion [Unknown]
  - Eye irritation [Unknown]
